FAERS Safety Report 15549404 (Version 1)
Quarter: 2018Q4

REPORT INFORMATION
  Report Type: Spontaneous
  Country: US (occurrence: US)
  Receive Date: 20181025
  Receipt Date: 20181025
  Transmission Date: 20190205
  Serious: No
  Sender: FDA-Public Use
  Company Number: US-PFIZER INC-2018436065

PATIENT
  Age: 59 Year
  Sex: Female
  Weight: 113.38 kg

DRUGS (1)
  1. XELJANZ XR [Suspect]
     Active Substance: TOFACITINIB CITRATE
     Indication: PSORIATIC ARTHROPATHY
     Dosage: 11 MG, DAILY
     Route: 048

REACTIONS (4)
  - Weight increased [Unknown]
  - Abdominal discomfort [Unknown]
  - Fatigue [Unknown]
  - Epistaxis [Unknown]
